FAERS Safety Report 24374382 (Version 1)
Quarter: 2024Q3

REPORT INFORMATION
  Report Type: Spontaneous
  Country: US (occurrence: US)
  Receive Date: 20240927
  Receipt Date: 20240927
  Transmission Date: 20241016
  Serious: No
  Sender: PFIZER
  Company Number: US-PFIZER INC-202400263326

PATIENT
  Age: 77 Year
  Sex: Male

DRUGS (1)
  1. LORBRENA [Suspect]
     Active Substance: LORLATINIB
     Dosage: 100 MG, DAILY

REACTIONS (4)
  - Amnesia [Unknown]
  - Loss of personal independence in daily activities [Unknown]
  - Fluid retention [Unknown]
  - Abdominal distension [Unknown]
